FAERS Safety Report 7019118-2 (Version None)
Quarter: 2010Q3

REPORT INFORMATION
  Report Type: 
  Country: None (occurrence: None)
  Receive Date: 20100928
  Receipt Date: 20100921
  Transmission Date: 20110219
  Serious: Yes (Other)
  Sender: FDA-Public Use
  Company Number: B0663452A

PATIENT
  Age: 41 Year
  Sex: Male

DRUGS (8)
  1. FONDAPARINUX SODIUM [Suspect]
     Indication: THROMBOSIS PROPHYLAXIS
     Dosage: 2.5MG PER DAY
     Route: 058
     Dates: start: 20100903, end: 20100904
  2. BLOPRESS [Concomitant]
     Indication: HYPERTENSION
     Dosage: 1IUAX PER DAY
     Route: 048
  3. ZYLORIC [Concomitant]
     Dosage: 1IUAX PER DAY
     Route: 048
  4. NATRIX [Concomitant]
     Indication: HYPERTENSION
     Dosage: 1IUAX PER DAY
     Route: 048
  5. ARTIST [Concomitant]
     Indication: HYPERTENSION
     Dosage: 1IUAX PER DAY
     Route: 048
  6. ALDACTONE [Concomitant]
     Indication: HYPERTENSION
     Dosage: 1IUAX PER DAY
     Route: 048
  7. ATELEC [Concomitant]
     Indication: HYPERTENSION
     Dosage: 2IUAX PER DAY
     Route: 048
  8. ODRIC [Concomitant]
     Indication: HYPERTENSION
     Dosage: 2IUAX PER DAY
     Route: 048

REACTIONS (3)
  - HAEMOGLOBIN DECREASED [None]
  - MELAENA [None]
  - RENAL IMPAIRMENT [None]
